FAERS Safety Report 17605863 (Version 1)
Quarter: 2020Q1

REPORT INFORMATION
  Report Type: Other
  Country: CA (occurrence: CA)
  Receive Date: 20200331
  Receipt Date: 20200331
  Transmission Date: 20200409
  Serious: Yes (Other)
  Sender: FDA-Public Use
  Company Number: CA-ACIC FINE CHEMICALS INC-2082144

PATIENT
  Age: 61 Year
  Sex: Female

DRUGS (8)
  1. NOREPINEPHRINE. [Concomitant]
     Active Substance: NOREPINEPHRINE
  2. DOBUTAMINE [Concomitant]
     Active Substance: DOBUTAMINE HYDROCHLORIDE
  3. TRANEXAMIC ACID. [Suspect]
     Active Substance: TRANEXAMIC ACID
     Route: 050
  4. SEVOFLURANE. [Concomitant]
     Active Substance: SEVOFLURANE
  5. ROCURONIUM [Suspect]
     Active Substance: ROCURONIUM BROMIDE
  6. PROPOFOL. [Concomitant]
     Active Substance: PROPOFOL
  7. MIDAZOLAM. [Concomitant]
     Active Substance: MIDAZOLAM
  8. SUFENTANIL [Concomitant]
     Active Substance: SUFENTANIL

REACTIONS (1)
  - Generalised tonic-clonic seizure [Recovered/Resolved]
